FAERS Safety Report 5643636-2 (Version None)
Quarter: 2008Q1

REPORT INFORMATION
  Report Type: 
  Country: None (occurrence: None)
  Receive Date: 20080228
  Receipt Date: 20080216
  Transmission Date: 20080703
  Serious: Yes (Hospitalization, Other)
  Sender: FDA-Public Use
  Company Number: US-PFIZER INC-2007105132

PATIENT
  Sex: Female
  Weight: 46.3 kg

DRUGS (2)
  1. TIKOSYN [Suspect]
     Indication: ATRIAL FIBRILLATION
     Route: 048
     Dates: start: 20061101, end: 20070401
  2. TIKOSYN [Suspect]
     Route: 048

REACTIONS (2)
  - PNEUMONIA [None]
  - RESPIRATORY FAILURE [None]
